FAERS Safety Report 4458844-6 (Version None)
Quarter: 2004Q3

REPORT INFORMATION
  Report Type: 
  Country: None (occurrence: None)
  Receive Date: 20040923
  Receipt Date: 20040923
  Transmission Date: 20050211
  Serious: Yes (Other)
  Sender: FDA-Public Use
  Company Number: None

PATIENT
  Age: 53 Year
  Sex: Female
  Weight: 34.927 kg

DRUGS (3)
  1. PROZAC [Suspect]
     Indication: ANOREXIA
     Dosage: V QHS
     Dates: start: 19990722
  2. DESYREL [Suspect]
     Indication: DEPRESSION
     Dosage: ONE @ HS
  3. DESYREL [Suspect]
     Indication: OBSESSIVE-COMPULSIVE DISORDER
     Dosage: ONE @ HS

REACTIONS (4)
  - MOOD SWINGS [None]
  - PHARMACEUTICAL PRODUCT COMPLAINT [None]
  - PRURITUS [None]
  - WEIGHT DECREASED [None]
